FAERS Safety Report 8785293 (Version 2)
Quarter: 2012Q4

REPORT INFORMATION
  Report Type: 
  Country: US (occurrence: US)
  Receive Date: 20120914
  Receipt Date: 20121024
  Transmission Date: 20130627
  Serious: No
  Sender: FDA-Public Use
  Company Number: US-009507513-1209USA004385

PATIENT
  Age: 60 Year
  Sex: Male
  Weight: 79.82 kg

DRUGS (1)
  1. VICTRELIS [Suspect]
     Dosage: 4 DF, tid
     Route: 048
     Dates: start: 20120907

REACTIONS (2)
  - Incorrect storage of drug [Unknown]
  - No adverse event [Unknown]
